FAERS Safety Report 9521803 (Version 1)
Quarter: 2013Q1

REPORT INFORMATION
  Report Type: Spontaneous
  Country: US (occurrence: None)
  Receive Date: 20130305
  Receipt Date: 20130305
  Transmission Date: 20140127
  Serious: Yes (Other)
  Sender: FDA-Public Use
  Company Number: 163-21880-12072904

PATIENT
  Age: 78 Year
  Sex: Male

DRUGS (1)
  1. REVLIMID (LENALIDOMIDE) (CAPSULES) [Suspect]
     Indication: B-CELL LYMPHOMA STAGE III
     Dosage: 21 IN 28 D
     Route: 048
     Dates: start: 20110825, end: 201203

REACTIONS (3)
  - Neutrophil count decreased [None]
  - Platelet count decreased [None]
  - Dyspnoea [None]
